FAERS Safety Report 10562562 (Version 1)
Quarter: 2014Q4

REPORT INFORMATION
  Report Type: Spontaneous
  Country: US (occurrence: None)
  Receive Date: 20141103
  Receipt Date: 20141103
  Transmission Date: 20150529
  Serious: Yes (Life-Threatening, Hospitalization)
  Sender: FDA-Public Use
  Company Number: None

PATIENT
  Age: 71 Year
  Sex: Male
  Weight: 91.6 kg

DRUGS (1)
  1. MOXIFLOXACIN [Suspect]
     Active Substance: MOXIFLOXACIN
     Indication: PNEUMONIA
     Route: 048
     Dates: start: 20141024, end: 20141024

REACTIONS (5)
  - Anaphylactic reaction [None]
  - Respiratory distress [None]
  - Urticaria [None]
  - Stridor [None]
  - Rash [None]

NARRATIVE: CASE EVENT DATE: 20141024
